FAERS Safety Report 19465631 (Version 1)
Quarter: 2021Q2

REPORT INFORMATION
  Report Type: Spontaneous
  Country: US (occurrence: US)
  Receive Date: 20210625
  Receipt Date: 20210625
  Transmission Date: 20210717
  Serious: No
  Sender: FDA-Public Use
  Company Number: US-JNJFOC-20210642062

PATIENT
  Age: 49 Year
  Sex: Male
  Weight: 106.69 kg

DRUGS (1)
  1. SIMPONI [Suspect]
     Active Substance: GOLIMUMAB
     Indication: COLITIS ULCERATIVE
     Route: 058

REACTIONS (33)
  - Anxiety [Unknown]
  - Exfoliative rash [Unknown]
  - Heart rate increased [Unknown]
  - Pruritus [Unknown]
  - Inflammation [Unknown]
  - Adverse drug reaction [Unknown]
  - Vision blurred [Unknown]
  - Pain [Unknown]
  - Blister [Unknown]
  - Tenderness [Unknown]
  - Hyperhidrosis [Unknown]
  - Visual impairment [Unknown]
  - Nerve compression [Unknown]
  - Illness [Unknown]
  - Transient acantholytic dermatosis [Unknown]
  - Hypoaesthesia [Unknown]
  - Diarrhoea [Unknown]
  - Dizziness [Unknown]
  - Muscle fatigue [Unknown]
  - Paraesthesia [Unknown]
  - Nasal congestion [Unknown]
  - Initial insomnia [Unknown]
  - Rosacea [Unknown]
  - Dermatitis [Unknown]
  - Rash erythematous [Unknown]
  - Psoriasis [Unknown]
  - Asthenia [Unknown]
  - Scar [Unknown]
  - Burning sensation [Unknown]
  - Nervousness [Unknown]
  - Erythema [Unknown]
  - Arthralgia [Unknown]
  - Rash [Unknown]

NARRATIVE: CASE EVENT DATE: 202011
